FAERS Safety Report 6090468-X (Version None)
Quarter: 2009Q1

REPORT INFORMATION
  Report Type: 
  Country: None (occurrence: None)
  Receive Date: 20090224
  Receipt Date: 20081229
  Transmission Date: 20090719
  Serious: No
  Sender: FDA-Public Use
  Company Number: US-ABBOTT-09P-163-0495537-00

PATIENT
  Sex: Female

DRUGS (5)
  1. SIMCOR [Suspect]
     Indication: DRUG USE FOR UNKNOWN INDICATION
     Dosage: 500/20MG
     Route: 048
     Dates: start: 20081218, end: 20081221
  2. ASPIRIN [Concomitant]
     Indication: DRUG USE FOR UNKNOWN INDICATION
  3. ACETOSE [Concomitant]
     Indication: DRUG USE FOR UNKNOWN INDICATION
  4. BYATA [Concomitant]
     Indication: DRUG USE FOR UNKNOWN INDICATION
  5. METFORMIN [Concomitant]
     Indication: DRUG USE FOR UNKNOWN INDICATION

REACTIONS (2)
  - DIZZINESS [None]
  - VOMITING [None]
